FAERS Safety Report 9393070 (Version 3)
Quarter: 2013Q3

REPORT INFORMATION
  Report Type: Spontaneous
  Country: DK (occurrence: IT)
  Receive Date: 20130710
  Receipt Date: 20130814
  Transmission Date: 20140515
  Serious: Yes (Hospitalization)
  Sender: FDA-Public Use
  Company Number: IT-FRI-1000046533

PATIENT
  Age: 83 Year
  Sex: Male

DRUGS (7)
  1. CITALOPRAM [Suspect]
     Indication: DEPRESSION
     Dosage: 40 MG
     Route: 048
     Dates: start: 20100101, end: 20130511
  2. CARDIOASPIRIN [Interacting]
     Indication: PROPHYLAXIS
     Dosage: 100 MG
     Route: 048
     Dates: start: 20100101, end: 20130511
  3. ENAPREN [Concomitant]
  4. LASIX [Concomitant]
  5. SIVASTIN [Concomitant]
  6. OLANZAPINA [Concomitant]
     Dosage: 5 MG
  7. MIRTAZAPINA [Concomitant]
     Dosage: 30 MG

REACTIONS (2)
  - Subarachnoid haemorrhage [Recovering/Resolving]
  - Drug interaction [Recovering/Resolving]
